FAERS Safety Report 22650098 (Version 1)
Quarter: 2023Q2

REPORT INFORMATION
  Report Type: Spontaneous
  Country: JP (occurrence: JP)
  Receive Date: 20230628
  Receipt Date: 20230628
  Transmission Date: 20230722
  Serious: Yes (Hospitalization, Other)
  Sender: FDA-Public Use
  Company Number: JP-OTSUKA-2023_016758

PATIENT
  Age: 60 Year
  Sex: Female

DRUGS (4)
  1. BUSULFEX [Suspect]
     Active Substance: BUSULFAN
     Indication: Premedication
     Dosage: 3.2 MG/KG FOR 4 DAYS
     Route: 065
  2. BUSULFEX [Suspect]
     Active Substance: BUSULFAN
     Indication: Transplant
  3. THIOTEPA [Suspect]
     Active Substance: THIOTEPA
     Indication: Premedication
     Dosage: 5 MG/KG FOR 2 DAYS
     Route: 065
  4. THIOTEPA [Suspect]
     Active Substance: THIOTEPA
     Indication: Transplant

REACTIONS (2)
  - Acidosis [Unknown]
  - Prerenal failure [Unknown]
